FAERS Safety Report 9594486 (Version 1)
Quarter: 2013Q4

REPORT INFORMATION
  Report Type: Spontaneous
  Country: US (occurrence: US)
  Receive Date: 20131004
  Receipt Date: 20131004
  Transmission Date: 20140711
  Serious: No
  Sender: FDA-Public Use
  Company Number: US-PURDUE-USA-2012-0091950

PATIENT
  Age: 48 Year
  Sex: Female

DRUGS (2)
  1. BUTRANS [Suspect]
     Indication: ANALGESIC THERAPY
     Dosage: 10 MCG/HR, UNK
     Route: 062
  2. VICODIN [Concomitant]
     Indication: ANALGESIC THERAPY
     Dosage: 5/500MG BID

REACTIONS (4)
  - Anger [Unknown]
  - Unevaluable event [Unknown]
  - Muscle spasms [Unknown]
  - Diarrhoea [Unknown]
